FAERS Safety Report 9709293 (Version 1)
Quarter: 2013Q4

REPORT INFORMATION
  Report Type: Report from Study
  Country: KR (occurrence: KR)
  Receive Date: 20131125
  Receipt Date: 20131125
  Transmission Date: 20140711
  Serious: Yes (Death, Other)
  Sender: FDA-Public Use
  Company Number: KR-ASTRAZENECA-2013SE86048

PATIENT
  Age: 27 Year
  Sex: Female

DRUGS (2)
  1. PROPOFOL [Suspect]
     Route: 042
  2. VECURONIUM [Interacting]

REACTIONS (3)
  - Drug interaction [Unknown]
  - Toxicity to various agents [Fatal]
  - Drug abuse [Fatal]
